FAERS Safety Report 5938635-7 (Version None)
Quarter: 2008Q4

REPORT INFORMATION
  Report Type: 
  Country: None (occurrence: None)
  Receive Date: 20081103
  Receipt Date: 20081020
  Transmission Date: 20090506
  Serious: Yes (Other)
  Sender: FDA-Public Use
  Company Number: JP-ASTRAZENECA-2008AP08185

PATIENT
  Age: 22221 Day
  Sex: Female

DRUGS (5)
  1. SEROQUEL [Suspect]
     Indication: SCHIZOPHRENIA
     Route: 048
     Dates: start: 20080829, end: 20080916
  2. ANAFRANIL [Concomitant]
     Indication: DEPRESSION
     Route: 048
     Dates: start: 20080827
  3. TETRAMIDE [Concomitant]
     Indication: DEPRESSION
     Route: 048
     Dates: end: 20080916
  4. CLOTIAZEPAM [Concomitant]
     Indication: INSOMNIA
     Route: 048
     Dates: end: 20080916
  5. MYSLEE [Concomitant]
     Indication: INSOMNIA
     Route: 048

REACTIONS (1)
  - HEPATIC FUNCTION ABNORMAL [None]
